FAERS Safety Report 4553070-4 (Version None)
Quarter: 2005Q1

REPORT INFORMATION
  Report Type: 
  Country: None (occurrence: None)
  Receive Date: 20050114
  Receipt Date: 20040205
  Transmission Date: 20050727
  Serious: Yes (Hospitalization, Congenital Anomaly)
  Sender: FDA-Public Use
  Company Number: PHRM2004FR00769

PATIENT
  Age: 2 Hour
  Sex: Male
  Weight: 3 kg

DRUGS (2)
  1. LEXOMIL [Suspect]
     Route: 064
  2. TEGRETOL [Suspect]
     Route: 064

REACTIONS (7)
  - BRADYCARDIA NEONATAL [None]
  - DRUG EXPOSURE DURING PREGNANCY [None]
  - FACIAL DYSMORPHISM [None]
  - HYPOCALCAEMIA [None]
  - HYPOTONIA [None]
  - HYPOTONIA NEONATAL [None]
  - NEONATAL DISORDER [None]
